FAERS Safety Report 26198179 (Version 1)
Quarter: 2025Q4

REPORT INFORMATION
  Report Type: Report from Study
  Country: CA (occurrence: CA)
  Receive Date: 20251224
  Receipt Date: 20251224
  Transmission Date: 20260118
  Serious: Yes (Other)
  Sender: PFIZER
  Company Number: CA-PFIZER INC-202500047972

PATIENT
  Age: 80 Year
  Sex: Female
  Weight: 49 kg

DRUGS (7)
  1. IXIFI [Suspect]
     Active Substance: INFLIXIMAB-QBTX
     Indication: Crohn^s disease
     Dosage: 600 MG, EVERY 4 WEEKS
     Route: 042
     Dates: start: 20250501, end: 20250501
  2. IXIFI [Suspect]
     Active Substance: INFLIXIMAB-QBTX
     Dosage: 600 MG, AFTER 4 WEEKS
     Route: 042
     Dates: start: 20250530
  3. IXIFI [Suspect]
     Active Substance: INFLIXIMAB-QBTX
     Dosage: 600 MG, AFTER 4 WEEKS
     Route: 042
     Dates: start: 20250627
  4. IXIFI [Suspect]
     Active Substance: INFLIXIMAB-QBTX
     Dosage: 600 MG, EVERY 4 WEEKS
     Route: 042
     Dates: start: 20250725
  5. IXIFI [Suspect]
     Active Substance: INFLIXIMAB-QBTX
     Dosage: 600 MG, AFTER 4 WEEKS
     Route: 042
     Dates: start: 20250822
  6. IXIFI [Suspect]
     Active Substance: INFLIXIMAB-QBTX
     Dosage: 600 MG, EVERY 4 WEEK
     Route: 042
     Dates: start: 20251114
  7. IXIFI [Suspect]
     Active Substance: INFLIXIMAB-QBTX
     Dosage: 600 MG,AFTER 4 WEEKS(EVERY 4 WEEK)
     Route: 042
     Dates: start: 20251218

REACTIONS (13)
  - Erythema [Not Recovered/Not Resolved]
  - Skin plaque [Not Recovered/Not Resolved]
  - Arthralgia [Recovered/Resolved]
  - Dry eye [Recovering/Resolving]
  - Condition aggravated [Not Recovered/Not Resolved]
  - Skin lesion [Not Recovered/Not Resolved]
  - Burning sensation [Not Recovered/Not Resolved]
  - Ocular hyperaemia [Not Recovered/Not Resolved]
  - Erythema [Not Recovered/Not Resolved]
  - Off label use [Unknown]
  - Off label use [Unknown]
  - Off label use [Unknown]
  - Intentional product use issue [Unknown]

NARRATIVE: CASE EVENT DATE: 20250101
